FAERS Safety Report 9783332 (Version 1)
Quarter: 2013Q4

REPORT INFORMATION
  Report Type: Spontaneous
  Country: US (occurrence: US)
  Receive Date: 20131226
  Receipt Date: 20131226
  Transmission Date: 20140711
  Serious: Yes (Hospitalization)
  Sender: FDA-Public Use
  Company Number: US-BAYER-2013-156320

PATIENT
  Age: 38 Year
  Sex: Female
  Weight: 83.9 kg

DRUGS (13)
  1. YASMIN [Suspect]
  2. OCELLA [Suspect]
  3. OMEPRAZOLE [Concomitant]
     Dosage: 40 MG, LONG TERM USE
     Route: 048
  4. SYNTHROID [Concomitant]
     Dosage: 125 MCG, LONG TERM USE
     Route: 048
  5. LOSARTAN POTASSIUM [Concomitant]
     Dosage: 100 MG, LONG TERM USE
     Route: 048
  6. HYDROCHLOROTHIAZIDE [Concomitant]
     Dosage: 50 MG, LONG TERM USE
     Route: 048
  7. ZOLPIDEM TARTRATE [Concomitant]
     Dosage: 5 MG, LONG TERM USE
     Route: 048
  8. VALACICLOVIR HYDROCHLORIDE [Concomitant]
     Dosage: 1 G, UNK
     Route: 048
     Dates: start: 20110921
  9. AMFETAMINE [Concomitant]
  10. STATIN [Concomitant]
  11. ACETAMINOPHEN [Concomitant]
     Indication: PYREXIA
     Dosage: 325 MG, 2 TABS EVERY 4 HOURS AS NEEDED
  12. LEVOTHYROXINE [Concomitant]
     Dosage: 125 MCG DAILY
  13. SIMVASTATIN [Concomitant]
     Dosage: 10 MG, DAILY

REACTIONS (2)
  - Cerebral infarction [Recovered/Resolved]
  - Cerebrovascular accident [Recovered/Resolved]
